FAERS Safety Report 9727779 (Version 1)
Quarter: 2013Q4

REPORT INFORMATION
  Report Type: Report from Study
  Country: CL (occurrence: CL)
  Receive Date: 20131203
  Receipt Date: 20131203
  Transmission Date: 20140711
  Serious: Yes (Other)
  Sender: FDA-Public Use
  Company Number: CL-ROCHE-1312088

PATIENT
  Age: 41 Year
  Sex: Female
  Weight: 63 kg

DRUGS (3)
  1. HERCEPTIN [Suspect]
     Indication: BREAST CANCER
     Route: 042
     Dates: start: 20131101, end: 20131112
  2. TAMOXIFEN [Suspect]
     Indication: BREAST CANCER
     Route: 048
     Dates: start: 201210
  3. DESVENLAFAXINE [Concomitant]
     Indication: DEPRESSION
     Route: 048
     Dates: start: 201205

REACTIONS (1)
  - Metastasis [Not Recovered/Not Resolved]
